FAERS Safety Report 4983160-3 (Version None)
Quarter: 2006Q2

REPORT INFORMATION
  Report Type: 
  Country: None (occurrence: None)
  Receive Date: 20060419
  Receipt Date: 20060403
  Transmission Date: 20061013
  Serious: Yes (Life-Threatening)
  Sender: FDA-Public Use
  Company Number: S06-GER-00409-01

PATIENT
  Age: 64 Year
  Sex: Male
  Weight: 90 kg

DRUGS (1)
  1. CITALOPRAM HYDROBROMIDE [Suspect]
     Indication: DEPRESSION
     Dosage: 20 MG QD PO
     Route: 048
     Dates: start: 20051217, end: 20060119

REACTIONS (3)
  - PLATELET DISORDER [None]
  - PULMONARY HAEMORRHAGE [None]
  - RESPIRATORY GAS EXCHANGE DISORDER [None]
